FAERS Safety Report 6462190-9 (Version None)
Quarter: 2009Q4

REPORT INFORMATION
  Report Type: 
  Country: None (occurrence: None)
  Receive Date: 20091130
  Receipt Date: 20091102
  Transmission Date: 20100525
  Serious: No
  Sender: FDA-Public Use
  Company Number: US-BAYER-200932996NA

PATIENT
  Age: 71 Year
  Sex: Male

DRUGS (7)
  1. LEVITRA [Suspect]
     Indication: ERECTILE DYSFUNCTION
     Dosage: UNIT DOSE: 10 MG
     Dates: start: 20090824
  2. LEVITRA [Suspect]
     Dosage: UNIT DOSE: 10 MG
     Dates: start: 20090907
  3. LEVITRA [Suspect]
     Dosage: UNIT DOSE: 10 MG
     Dates: start: 20050101
  4. BISOPROLOL FUMARATE AND HYDROCHLOROTHIAZIDE [Concomitant]
     Dosage: AS USED: 10/6.25 MG
  5. DIOVAN [Concomitant]
  6. SIMVASTATIN [Concomitant]
  7. AMLODIPINE BESYLATE AND BENAZEPRIL HCL [Concomitant]
     Dosage: AS USED: 10/20 MG

REACTIONS (1)
  - ERECTILE DYSFUNCTION [None]
